FAERS Safety Report 5117254-9 (Version None)
Quarter: 2006Q3

REPORT INFORMATION
  Report Type: 
  Country: None (occurrence: None)
  Receive Date: 20060926
  Receipt Date: 20060908
  Transmission Date: 20061208
  Serious: Yes (Hospitalization, Other)
  Sender: FDA-Public Use
  Company Number: 2006096677

PATIENT
  Age: 30 Year
  Sex: Female
  Weight: 72.5755 kg

DRUGS (17)
  1. XANAX [Suspect]
     Indication: PSYCHOTIC DISORDER
     Dosage: 0.75 MG (0.25 MG, 3 IN 1 D), ORAL
     Route: 048
     Dates: start: 20050201
  2. GEODON [Suspect]
     Dosage: 20 MG (20 MG, FREQUENCY; QD INTERVAL; EVERY DAY)
  3. RELPAX [Suspect]
     Indication: MIGRAINE
     Dates: start: 20050701
  4. XYREM [Suspect]
     Indication: SLEEP DISORDER
     Dosage: 8 GRAM (4 GRAM, 2 IN 1 D), ORAL
     Route: 048
     Dates: start: 20050101, end: 20050101
  5. ALLEGRA [Suspect]
  6. PAXIL [Suspect]
     Dosage: 20 MG (20 MG, 1 IN 1D)
     Dates: start: 20050601
  7. ZYPREXA [Concomitant]
  8. ASPIRIN [Concomitant]
  9. ESTROGENIC SUBSTANCE [Concomitant]
  10. AMBIEN [Concomitant]
  11. ROBAXIN [Concomitant]
  12. TRAZODONE HCL [Concomitant]
  13. WELLBUTRIN XL [Concomitant]
  14. ROZEREM [Concomitant]
  15. TOPAMAX [Concomitant]
  16. SYNTHROID [Concomitant]
  17. COUGH AND COLD PREPARATIONS (COUGH AND COLD PREPARATIONS) [Concomitant]

REACTIONS (25)
  - ABNORMAL BEHAVIOUR [None]
  - BLOOD THYROID STIMULATING HORMONE DECREASED [None]
  - CONFUSIONAL STATE [None]
  - CRYING [None]
  - DELUSION [None]
  - DEPRESSION [None]
  - DRUG INTERACTION [None]
  - FALL [None]
  - FEELINGS OF WORTHLESSNESS [None]
  - HALLUCINATION [None]
  - HOMICIDAL IDEATION [None]
  - ILLUSION [None]
  - INCREASED APPETITE [None]
  - LABORATORY TEST ABNORMAL [None]
  - MOOD SWINGS [None]
  - NERVOUSNESS [None]
  - OBSESSIVE THOUGHTS [None]
  - OVERDOSE [None]
  - PANIC DISORDER [None]
  - PARANOIA [None]
  - PSYCHOTIC DISORDER [None]
  - STRESS [None]
  - SUICIDE ATTEMPT [None]
  - TACHYCARDIA [None]
  - WEIGHT INCREASED [None]
